FAERS Safety Report 6007705-X (Version None)
Quarter: 2008Q4

REPORT INFORMATION
  Report Type: 
  Country: None (occurrence: None)
  Receive Date: 20081217
  Receipt Date: 20080519
  Transmission Date: 20090506
  Serious: No
  Sender: FDA-Public Use
  Company Number: US-ASTRAZENECA-2008UW10241

PATIENT
  Age: 79 Year
  Sex: Male
  Weight: 99.8 kg

DRUGS (14)
  1. CRESTOR [Suspect]
     Indication: BLOOD CHOLESTEROL
     Route: 048
     Dates: start: 20070101
  2. CRESTOR [Suspect]
     Route: 048
  3. LEVOTHYROXINE SODIUM [Concomitant]
  4. ISOSORBIDE [Concomitant]
  5. PREVACID [Concomitant]
  6. TOPROL-XL [Concomitant]
     Route: 048
  7. ASCORBIC ACID [Concomitant]
  8. VITAMIN B [Concomitant]
  9. CENTRUM SILVER [Concomitant]
  10. ASPIRIN [Concomitant]
  11. NORVASC [Concomitant]
  12. WARFARIN SODIUM [Concomitant]
  13. HYDROCODONE BITARTRATE [Concomitant]
  14. NITRO PILLS [Concomitant]

REACTIONS (2)
  - BLOOD CHOLESTEROL INCREASED [None]
  - MUSCLE SPASMS [None]
